FAERS Safety Report 13094294 (Version 1)
Quarter: 2017Q1

REPORT INFORMATION
  Report Type: Spontaneous
  Country: TR (occurrence: TR)
  Receive Date: 20170106
  Receipt Date: 20170106
  Transmission Date: 20170428
  Serious: Yes (Other)
  Sender: FDA-Public Use
  Company Number: TR-HQ SPECIALTY-TR-2016INT001011

PATIENT
  Age: 58 Year
  Sex: Male

DRUGS (3)
  1. CISPLATIN. [Suspect]
     Active Substance: CISPLATIN
     Indication: TESTIS CANCER
     Dosage: UNK
  2. ETOPOSIDE. [Suspect]
     Active Substance: ETOPOSIDE
     Indication: TESTIS CANCER
     Dosage: UNK
  3. BLEOMYCIN [Suspect]
     Active Substance: BLEOMYCIN SULFATE
     Indication: TESTIS CANCER
     Dosage: UNK

REACTIONS (9)
  - Cyanosis [Recovered/Resolved]
  - Peripheral coldness [Recovered/Resolved]
  - Raynaud^s phenomenon [Recovered/Resolved]
  - Peripheral artery occlusion [Unknown]
  - Pain in extremity [Unknown]
  - Hyperaemia [Recovered/Resolved]
  - Arterial thrombosis [Recovered/Resolved]
  - Ischaemia [Unknown]
  - Peripheral artery stenosis [Unknown]
